FAERS Safety Report 6656785-7 (Version None)
Quarter: 2010Q1

REPORT INFORMATION
  Report Type: 
  Country: None (occurrence: None)
  Receive Date: 20100329
  Receipt Date: 20100315
  Transmission Date: 20100710
  Serious: Yes (Other)
  Sender: FDA-Public Use
  Company Number: CA-MERCK-1003USA02353

PATIENT
  Age: 74 Year
  Sex: Female

DRUGS (5)
  1. COZAAR [Suspect]
     Route: 048
  2. ASPIRIN [Suspect]
     Route: 048
  3. ASPIRIN [Suspect]
     Route: 048
  4. CLORAZEPATE DIPOTASSIUM [Concomitant]
     Route: 048
  5. PLAVIX [Suspect]
     Route: 048

REACTIONS (7)
  - EPISTAXIS [None]
  - LIP HAEMORRHAGE [None]
  - MIGRAINE [None]
  - ORAL HERPES [None]
  - PARAESTHESIA [None]
  - SWELLING FACE [None]
  - TRANSIENT ISCHAEMIC ATTACK [None]
